FAERS Safety Report 6030617-2 (Version None)
Quarter: 2009Q1

REPORT INFORMATION
  Report Type: 
  Country: None (occurrence: None)
  Receive Date: 20090107
  Receipt Date: 20081211
  Transmission Date: 20090719
  Serious: Yes (Other)
  Sender: FDA-Public Use
  Company Number: DE-GILEAD-2008-0019136

PATIENT
  Age: 51 Year
  Sex: Male

DRUGS (2)
  1. HEPSERA [Suspect]
  2. HEPSERA [Suspect]

REACTIONS (9)
  - ACUTE HEPATIC FAILURE [None]
  - ALANINE AMINOTRANSFERASE INCREASED [None]
  - DRUG INEFFECTIVE [None]
  - DRUG RESISTANCE [None]
  - HEPATIC CIRRHOSIS [None]
  - HEPATIC NEOPLASM MALIGNANT [None]
  - VARICES OESOPHAGEAL [None]
  - VIRAEMIA [None]
  - VIRAL INFECTION [None]
